APPROVED DRUG PRODUCT: XYLOCAINE DENTAL WITH EPINEPHRINE
Active Ingredient: EPINEPHRINE; LIDOCAINE HYDROCHLORIDE
Strength: 0.01MG/ML;2% **Federal Register determination that product was not discontinued or withdrawn for safety or effectiveness reasons**
Dosage Form/Route: INJECTABLE;INJECTION
Application: N021381 | Product #001
Applicant: DENTSPLY PHARMACEUTICAL INC
Approved: Approved Prior to Jan 1, 1982 | RLD: No | RS: No | Type: DISCN